FAERS Safety Report 21770038 (Version 1)
Quarter: 2022Q4

REPORT INFORMATION
  Report Type: Report from Study
  Country: US (occurrence: US)
  Receive Date: 20221223
  Receipt Date: 20221223
  Transmission Date: 20230113
  Serious: Yes (Other)
  Sender: FDA-Public Use
  Company Number: US-BEH-2022153450

PATIENT
  Age: 48 Year
  Sex: Female

DRUGS (1)
  1. PRIVIGEN [Suspect]
     Active Substance: HUMAN IMMUNOGLOBULIN G
     Indication: Dermatomyositis
     Dosage: UNK
     Route: 042
     Dates: start: 202202

REACTIONS (11)
  - Blood creatinine increased [Unknown]
  - Fatigue [Unknown]
  - Headache [Unknown]
  - Neutrophil count decreased [Unknown]
  - Palpitations [Unknown]
  - Tachycardia [Unknown]
  - No adverse event [Unknown]
  - Product use in unapproved indication [Unknown]
  - Malaise [Unknown]
  - Infection [Unknown]
  - White blood cell count decreased [Unknown]

NARRATIVE: CASE EVENT DATE: 20220101
